FAERS Safety Report 6999711-3 (Version None)
Quarter: 2010Q3

REPORT INFORMATION
  Report Type: 
  Country: None (occurrence: None)
  Receive Date: 20100920
  Receipt Date: 20100104
  Transmission Date: 20110219
  Serious: Yes (Other)
  Sender: FDA-Public Use
  Company Number: US-ASTRAZENECA-2009UW21671

PATIENT
  Age: 427 Month
  Sex: Female
  Weight: 88 kg

DRUGS (18)
  1. SEROQUEL [Suspect]
     Indication: BIPOLAR DISORDER
     Route: 048
     Dates: start: 20010101
  2. SEROQUEL [Suspect]
     Indication: MANIA
     Route: 048
     Dates: start: 20010101
  3. SEROQUEL [Suspect]
     Indication: PANIC DISORDER
     Route: 048
     Dates: start: 20010101
  4. SEROQUEL [Suspect]
     Route: 048
     Dates: start: 20010901
  5. SEROQUEL [Suspect]
     Route: 048
     Dates: start: 20010901
  6. SEROQUEL [Suspect]
     Route: 048
     Dates: start: 20010901
  7. ABILIFY [Concomitant]
  8. ABILIFY [Concomitant]
     Dates: start: 20080301
  9. GEODON [Concomitant]
     Dates: start: 20010101, end: 20050101
  10. GEODON [Concomitant]
     Dosage: 20 MG TO 80 MG
     Dates: start: 20010101, end: 20040401
  11. RISPERDAL [Concomitant]
     Dosage: 1 MG TO 2 MG
     Dates: start: 20000101, end: 20001201
  12. ZYPREXA/ZYPREXIA [Concomitant]
     Dates: start: 20050101
  13. KLONOPIN [Concomitant]
     Dates: start: 20071201, end: 20090801
  14. XANAX [Concomitant]
     Dates: start: 20071201, end: 20090801
  15. CYMBALTA [Concomitant]
     Dates: start: 20090901
  16. REMERON [Concomitant]
     Dates: start: 20081001, end: 20090801
  17. TOPAMAX [Concomitant]
     Dates: start: 20071201, end: 20080901
  18. LAMICTAL [Concomitant]
     Dates: start: 20000101, end: 20080801

REACTIONS (6)
  - DIABETES MELLITUS [None]
  - GLUCOSE TOLERANCE IMPAIRED [None]
  - MOVEMENT DISORDER [None]
  - OBESITY [None]
  - TARDIVE DYSKINESIA [None]
  - WEIGHT INCREASED [None]
